FAERS Safety Report 4497450-4 (Version None)
Quarter: 2004Q4

REPORT INFORMATION
  Report Type: 
  Country: None (occurrence: None)
  Receive Date: 20041110
  Receipt Date: 20011025
  Transmission Date: 20050328
  Serious: Yes (Hospitalization)
  Sender: FDA-Public Use
  Company Number: US-MERCK-01104517

PATIENT
  Age: 73 Year
  Sex: Male
  Weight: 80 kg

DRUGS (23)
  1. GLUCOSAMINE [Concomitant]
     Route: 065
  2. OMEGA-3 [Concomitant]
     Route: 065
  3. COENZYME Q10 [Concomitant]
     Route: 065
  4. NONSTEROIDAL ANTI-INFLAMMATORY DRUG (UNSPECIFIED) [Concomitant]
     Route: 065
     Dates: start: 19910101
  5. VIOXX [Suspect]
     Indication: RHEUMATOID ARTHRITIS
     Route: 048
     Dates: start: 19990101
  6. VIOXX [Suspect]
     Route: 048
     Dates: start: 20001101, end: 20001101
  7. VIOXX [Suspect]
     Indication: BACK PAIN
     Route: 048
     Dates: start: 19990101
  8. VIOXX [Suspect]
     Route: 048
     Dates: start: 20001101, end: 20001101
  9. ZANTAC [Concomitant]
     Indication: HIATUS HERNIA
     Route: 065
  10. COLCHICINE [Concomitant]
     Indication: GOUT
     Route: 065
  11. ATENOLOL [Concomitant]
     Indication: HYPERTENSION
     Route: 065
     Dates: start: 19990101
  12. LOTENSIN [Concomitant]
     Indication: HYPERTENSION
     Route: 065
     Dates: start: 19920101
  13. ASPIRIN [Concomitant]
     Route: 065
     Dates: start: 19920101
  14. ZOCOR [Concomitant]
     Indication: BLOOD CHOLESTEROL INCREASED
     Route: 065
     Dates: start: 19990908
  15. ALEVE [Concomitant]
     Indication: PAIN
     Route: 065
     Dates: start: 19910101
  16. TYLENOL [Concomitant]
     Indication: PAIN
     Route: 065
     Dates: start: 19910101
  17. ASCORBIC ACID [Concomitant]
     Route: 065
  18. VITAMIN E [Concomitant]
     Route: 065
  19. CEFADROXIL [Concomitant]
     Route: 065
     Dates: start: 20001129, end: 20001204
  20. [THERAPY UNSPECIFIED] [Concomitant]
     Route: 065
     Dates: start: 20001130, end: 20001205
  21. METRONIDAZOLE [Concomitant]
     Route: 065
     Dates: start: 20001204
  22. PREDNISONE [Concomitant]
     Route: 065
     Dates: start: 20001204
  23. DICLOFENAC [Concomitant]
     Route: 065
     Dates: start: 20000210

REACTIONS (25)
  - ABDOMINAL DISTENSION [None]
  - ANGER [None]
  - ARTHRALGIA [None]
  - BALANCE DISORDER [None]
  - CELLULITIS [None]
  - CLOSTRIDIUM COLITIS [None]
  - CONFUSIONAL STATE [None]
  - DECREASED APPETITE [None]
  - DISORIENTATION [None]
  - DIZZINESS [None]
  - DRUG INEFFECTIVE [None]
  - DYSPEPSIA [None]
  - FEELING JITTERY [None]
  - GOUT [None]
  - INJURY [None]
  - INSOMNIA [None]
  - INTERVERTEBRAL DISC DEGENERATION [None]
  - MEMORY IMPAIRMENT [None]
  - MOOD ALTERED [None]
  - OSTEOARTHRITIS [None]
  - PAIN [None]
  - SCOLIOSIS [None]
  - SPONDYLOLISTHESIS [None]
  - VIRAL INFECTION [None]
  - VISION BLURRED [None]
